FAERS Safety Report 4269523-2 (Version None)
Quarter: 2004Q1

REPORT INFORMATION
  Report Type: 
  Country: None (occurrence: None)
  Receive Date: 20040112
  Receipt Date: 20040112
  Transmission Date: 20041129
  Serious: Yes (Hospitalization)
  Sender: FDA-Public Use
  Company Number: None

PATIENT
  Age: 58 Year
  Sex: Male

DRUGS (8)
  1. METOPROLOL [Suspect]
     Indication: HYPERTENSION
     Dosage: 75 MG BID
     Dates: start: 20030619
  2. ISOSORBIDE [Concomitant]
  3. ZOCOR [Concomitant]
  4. ASPIRIN [Concomitant]
  5. PLAVIX [Concomitant]
  6. LEVAQUIN [Concomitant]
  7. FINASTERIDE [Concomitant]
  8. FLOMAX [Concomitant]

REACTIONS (1)
  - BRADYCARDIA [None]
